FAERS Safety Report 5177109-0 (Version None)
Quarter: 2006Q4

REPORT INFORMATION
  Report Type: 
  Country: None (occurrence: None)
  Receive Date: 20061218
  Receipt Date: 20060217
  Transmission Date: 20070319
  Serious: Yes (Death)
  Sender: FDA-Public Use
  Company Number: SG-ROCHE-437344

PATIENT
  Age: 44 Year
  Sex: Male

DRUGS (5)
  1. TAMIFLU [Suspect]
     Route: 048
     Dates: start: 20050921
  2. XANAX [Concomitant]
     Dosage: TAKEN AT NIGHT.
     Dates: start: 20050916
  3. OMEPRAZOLE [Concomitant]
     Dates: start: 20050921
  4. DISFLATYL [Concomitant]
     Dates: start: 20050921
  5. ANTACID TAB [Concomitant]
     Dates: start: 20050921

REACTIONS (1)
  - COMPLETED SUICIDE [None]
